FAERS Safety Report 7833197-1 (Version None)
Quarter: 2011Q4

REPORT INFORMATION
  Report Type: 
  Country: None (occurrence: None)
  Receive Date: 20111024
  Receipt Date: 20111013
  Transmission Date: 20120403
  Serious: Yes (Hospitalization)
  Sender: FDA-Public Use
  Company Number: US-JNJFOC-20110803483

PATIENT
  Sex: Male
  Weight: 32.9 kg

DRUGS (3)
  1. REMICADE [Suspect]
     Route: 042
     Dates: end: 20110603
  2. REMICADE [Suspect]
     Indication: INFLAMMATORY BOWEL DISEASE
     Route: 042
     Dates: start: 20101104
  3. REMICADE [Suspect]
     Route: 042
     Dates: start: 20110825

REACTIONS (1)
  - OSTEOMYELITIS [None]
